FAERS Safety Report 7530733-X (Version None)
Quarter: 2011Q2

REPORT INFORMATION
  Report Type: 
  Country: None (occurrence: None)
  Receive Date: 20110607
  Receipt Date: 20110602
  Transmission Date: 20111010
  Serious: Yes (Death, Hospitalization)
  Sender: FDA-Public Use
  Company Number: FR-PFIZER INC-FR-WYE-G06514010

PATIENT
  Age: 58 Year
  Sex: Male

DRUGS (10)
  1. ACETYLSALICYLIC ACID/PARACETAMOL [Suspect]
     Dosage: UNKNOWN
     Route: 042
     Dates: start: 20100427, end: 20100506
  2. NEXIUM [Suspect]
     Dosage: UNKNOWN
     Route: 042
     Dates: start: 20100419
  3. ACETYLSALICYLIC ACID/PARACETAMOL [Suspect]
     Dosage: UNKNOWN
     Route: 065
     Dates: start: 20100401, end: 20100419
  4. PIPERACILLIN AND TAZOBACTAM [Suspect]
     Dosage: UNKNOWN
     Route: 042
     Dates: start: 20100419, end: 20100424
  5. SOLU-MEDROL [Suspect]
     Dosage: UNKNOWN
     Route: 065
     Dates: start: 20100420, end: 20100425
  6. ZOVIRAX [Suspect]
     Dosage: UNKNOWN
     Route: 065
     Dates: start: 20100419, end: 20100424
  7. ROCEPHIN [Suspect]
     Dosage: UNKNOWN
     Route: 065
     Dates: start: 20100426, end: 20100504
  8. TEGELINE [Suspect]
     Dosage: UNKNOWN
     Route: 065
     Dates: start: 20100420, end: 20100424
  9. VANCOMYCIN [Suspect]
     Dosage: UNKNOWN
     Route: 042
     Dates: start: 20100418, end: 20100512
  10. CANCIDAS [Suspect]
     Dosage: UNKNOWN
     Route: 042
     Dates: start: 20100419, end: 20100513

REACTIONS (5)
  - STEVENS-JOHNSON SYNDROME [None]
  - SEPSIS [None]
  - CONDITION AGGRAVATED [None]
  - BRONCHOPULMONARY ASPERGILLOSIS [None]
  - GENERAL PHYSICAL HEALTH DETERIORATION [None]
